FAERS Safety Report 19846876 (Version 1)
Quarter: 2021Q3

REPORT INFORMATION
  Report Type: Spontaneous
  Country: US (occurrence: US)
  Receive Date: 20210917
  Receipt Date: 20210917
  Transmission Date: 20211014
  Serious: No
  Sender: FDA-Public Use
  Company Number: US-RECKITT BENCKISER HEALTHCARE INT LIMITED-RB-84537-2021

PATIENT
  Age: 36 Year
  Sex: Male

DRUGS (1)
  1. MUCINEX MAXIMUM STRENGTH [Suspect]
     Active Substance: GUAIFENESIN
     Indication: PULMONARY CONGESTION
     Dosage: 1200 MILLIGRAM, BID, TOTAL 8 TABLETS
     Route: 065
     Dates: start: 20210219

REACTIONS (1)
  - Heart rate increased [Recovered/Resolved]
